FAERS Safety Report 8808817 (Version 1)
Quarter: 2012Q4

REPORT INFORMATION
  Report Type: 
  Country: CA (occurrence: CA)
  Receive Date: 20120926
  Receipt Date: 20120926
  Transmission Date: 20130627
  Serious: Yes (Disabling)
  Sender: FDA-Public Use
  Company Number: CA-PFIZER INC-2012204417

PATIENT
  Age: 28 Year
  Sex: Female

DRUGS (4)
  1. PRISTIQ [Suspect]
     Indication: DEPRESSION
     Dosage: 50 mg, 1x/day
     Route: 048
  2. PRISTIQ [Suspect]
     Dosage: 50 mg, 1 every 2 days for 1 month
     Route: 048
  3. PRISTIQ [Suspect]
     Dosage: 50 mg, 1 every 3 days
     Route: 048
  4. PRISTIQ [Suspect]
     Dosage: 50 mg, 1 every 2 days
     Route: 048

REACTIONS (4)
  - Feeling abnormal [Recovered/Resolved]
  - Headache [Recovered/Resolved]
  - Mood altered [Recovered/Resolved]
  - Drug withdrawal syndrome [Recovered/Resolved]
